FAERS Safety Report 10237683 (Version 1)
Quarter: 2014Q2

REPORT INFORMATION
  Report Type: Spontaneous
  Country: US (occurrence: US)
  Receive Date: 20140616
  Receipt Date: 20140616
  Transmission Date: 20141212
  Serious: Yes (Hospitalization, Other)
  Sender: FDA-Public Use
  Company Number: US-DRREDDYS-USA/USA/14/0041052

PATIENT
  Age: 55 Year
  Sex: Male

DRUGS (6)
  1. ZIPRASIDONE [Suspect]
     Indication: MANIA
     Route: 065
  2. ZIPRASIDONE [Suspect]
     Route: 065
  3. QUETIAPINE FUMARATE TABLETS [Suspect]
     Indication: MAJOR DEPRESSION
     Dosage: UNKNOWN
     Route: 065
  4. RISPERIDONE [Suspect]
     Indication: MAJOR DEPRESSION
     Route: 065
  5. OLANZAPINE FILM-COATED TABLET [Suspect]
     Indication: MAJOR DEPRESSION
     Route: 065
  6. LAMOTRIGINE TABLETS [Suspect]
     Indication: MAJOR DEPRESSION
     Route: 065

REACTIONS (6)
  - Mania [Recovered/Resolved]
  - Tardive dyskinesia [Recovered/Resolved]
  - Off label use [Unknown]
  - Akathisia [Recovered/Resolved]
  - Weight increased [Unknown]
  - Sedation [Unknown]
